FAERS Safety Report 4794334-9 (Version None)
Quarter: 2005Q4

REPORT INFORMATION
  Report Type: 
  Country: None (occurrence: None)
  Receive Date: 20051011
  Receipt Date: 20050713
  Transmission Date: 20060501
  Serious: Yes (Hospitalization, Other)
  Sender: FDA-Public Use
  Company Number: GB-MERCK-0507GBR00135

PATIENT
  Age: 63 Year
  Sex: Male
  Weight: 83 kg

DRUGS (10)
  1. VIOXX [Suspect]
     Indication: OSTEOARTHRITIS
     Route: 048
     Dates: start: 20030201, end: 20031101
  2. QUININE SULFATE [Concomitant]
     Indication: MUSCLE SPASMS
     Route: 065
  3. MOMETASONE FUROATE [Concomitant]
     Route: 065
  4. CROMOLYN SODIUM [Concomitant]
     Route: 065
  5. GINSENG [Concomitant]
     Route: 065
  6. GINKGO BILOBA EXTRACT [Concomitant]
     Route: 065
  7. DICLOFENAC SODIUM AND MISOPROSTOL [Concomitant]
     Route: 065
     Dates: start: 20031107
  8. DICLOFENAC SODIUM [Concomitant]
     Route: 065
     Dates: start: 20030910
  9. DICLOFENAC [Concomitant]
     Route: 065
     Dates: start: 20010425
  10. [THERAPY UNSPECIFIED] [Concomitant]
     Route: 065

REACTIONS (12)
  - ATRIAL FIBRILLATION [None]
  - BACK PAIN [None]
  - COUGH [None]
  - DIZZINESS [None]
  - ERECTILE DYSFUNCTION [None]
  - HEART RATE INCREASED [None]
  - HIGH DENSITY LIPOPROTEIN INCREASED [None]
  - HYPERCHLORHYDRIA [None]
  - MUSCULOSKELETAL PAIN [None]
  - MYOCARDIAL INFARCTION [None]
  - POST PROCEDURAL COMPLICATION [None]
  - RAYNAUD'S PHENOMENON [None]
